FAERS Safety Report 9221556 (Version 1)
Quarter: 2013Q2

REPORT INFORMATION
  Report Type: Spontaneous
  Country: DE (occurrence: None)
  Receive Date: 20130408
  Receipt Date: 20130408
  Transmission Date: 20140414
  Serious: Yes (Other)
  Sender: FDA-Public Use
  Company Number: AUR-APL-2013-02765

PATIENT
  Sex: Female

DRUGS (2)
  1. MONTELUKAST [Suspect]
     Indication: INFLUENZA
     Dates: start: 201303
  2. CEFURAX [Suspect]
     Indication: INFLUENZA
     Dates: start: 201303

REACTIONS (1)
  - Drug ineffective [None]
